FAERS Safety Report 7048964-4 (Version None)
Quarter: 2010Q4

REPORT INFORMATION
  Report Type: 
  Country: None (occurrence: None)
  Receive Date: 20101008
  Receipt Date: 20100929
  Transmission Date: 20110411
  Serious: Yes (Death)
  Sender: FDA-Public Use
  Company Number: 2010090078

PATIENT
  Age: 60 Year
  Sex: Male

DRUGS (3)
  1. ONSOLIS [Suspect]
     Indication: CANCER PAIN
     Dosage: TITRATE UP TO 4-200 MCG FILMS/DOSE (UP TO 4 TIMES DAILY), BU
     Route: 002
     Dates: start: 20100915
  2. OXYCONTIN [Concomitant]
  3. OXYCODONE HCL [Concomitant]

REACTIONS (1)
  - DEATH [None]
